FAERS Safety Report 25624344 (Version 2)
Quarter: 2025Q4

REPORT INFORMATION
  Report Type: Report from Study
  Country: CO (occurrence: CO)
  Receive Date: 20250730
  Receipt Date: 20251003
  Transmission Date: 20260117
  Serious: Yes (Other)
  Sender: MERCK SHARP & DOHME LLC
  Company Number: CO-009507513-2403COL005761

PATIENT
  Age: 70 Year
  Sex: Male

DRUGS (8)
  1. KEYTRUDA [Suspect]
     Active Substance: PEMBROLIZUMAB
     Indication: Lung neoplasm malignant
     Dosage: DOSE DESCRIPTION : 200 MG, EVERY 3 WEEKS?DAILY DOSE : 9.4 MILLIGRAM?REGIMEN DOSE : 200  MILLIGRAM
     Route: 042
     Dates: start: 20221111, end: 20221111
  2. KEYTRUDA [Suspect]
     Active Substance: PEMBROLIZUMAB
     Indication: Lung neoplasm malignant
     Dosage: DOSE DESCRIPTION : 200 MG, EVERY 3 WEEKS?DAILY DOSE : 9.4 MILLIGRAM?REGIMEN DOSE : 200  MILLIGRAM
     Route: 042
     Dates: start: 20240312, end: 20240312
  3. KEYTRUDA [Suspect]
     Active Substance: PEMBROLIZUMAB
     Indication: Lung neoplasm malignant
     Dosage: DOSE DESCRIPTION : 200 MG, EVERY 3 WEEKS ?DAILY DOSE : 9.4 MILLIGRAM?REGIMEN DOSE : 200  MILLIGRAM
     Route: 042
     Dates: start: 20241114, end: 20241114
  4. KEYTRUDA [Suspect]
     Active Substance: PEMBROLIZUMAB
     Indication: Lung neoplasm malignant
     Dosage: DOSE DESCRIPTION : 200 MG, EVERY 3 WEEKS?DAILY DOSE : 9.4 MILLIGRAM?REGIMEN DOSE : 200  MILLIGRAM
     Route: 042
     Dates: start: 20250318, end: 20250318
  5. KEYTRUDA [Suspect]
     Active Substance: PEMBROLIZUMAB
     Indication: Lung neoplasm malignant
     Dosage: DOSE DESCRIPTION : 200 MG, EVERY 3 WEEKS. CYCLE 37?DAILY DOSE : 9.4 MILLIGRAM?REGIMEN DOSE : 200 ...
     Route: 042
     Dates: start: 20250619, end: 20250619
  6. KEYTRUDA [Suspect]
     Active Substance: PEMBROLIZUMAB
     Indication: Lung neoplasm malignant
     Dosage: 200 MG, EVERY 3 WEEKS
     Route: 042
     Dates: start: 20250821, end: 20250821
  7. METFORMIN [Concomitant]
     Active Substance: METFORMIN HYDROCHLORIDE
     Indication: Diabetes mellitus
  8. AMLODIPINE [Concomitant]
     Active Substance: AMLODIPINE BESYLATE
     Indication: Hypertension

REACTIONS (18)
  - Syncope [Recovered/Resolved]
  - Gastric mucosal lesion [Unknown]
  - Dizziness [Recovering/Resolving]
  - Bone pain [Unknown]
  - Discouragement [Not Recovered/Not Resolved]
  - Chest pain [Recovered/Resolved]
  - Bedridden [Not Recovered/Not Resolved]
  - Malaise [Recovered/Resolved]
  - Nausea [Recovered/Resolved]
  - Vomiting [Recovering/Resolving]
  - Asthenia [Recovered/Resolved]
  - Productive cough [Not Recovered/Not Resolved]
  - Cough [Recovered/Resolved]
  - Dyspnoea [Recovered/Resolved]
  - Inappropriate schedule of product administration [Unknown]
  - Blood creatinine increased [Recovering/Resolving]
  - Blood urea increased [Unknown]
  - Asthenia [Not Recovered/Not Resolved]

NARRATIVE: CASE EVENT DATE: 20240101
